FAERS Safety Report 7713649-5 (Version None)
Quarter: 2011Q3

REPORT INFORMATION
  Report Type: 
  Country: None (occurrence: None)
  Receive Date: 20110826
  Receipt Date: 20110819
  Transmission Date: 20111222
  Serious: Yes (Hospitalization)
  Sender: FDA-Public Use
  Company Number: PHHY2011CZ74537

PATIENT
  Sex: Male

DRUGS (3)
  1. GABAPENTIN [Suspect]
     Dosage: 300 MG, BID
     Route: 048
     Dates: start: 20110718, end: 20110719
  2. PRESTANCE (PERINDOPRIL/AMLODIPINE) [Concomitant]
     Dosage: 5 MG, UNK
  3. ZOCOR [Concomitant]
     Dosage: 10 MG, UNK

REACTIONS (2)
  - RASH [None]
  - VASCULITIS [None]
